FAERS Safety Report 11872196 (Version 1)
Quarter: 2015Q4

REPORT INFORMATION
  Report Type: Spontaneous
  Country: DE (occurrence: DE)
  Receive Date: 20151228
  Receipt Date: 20151228
  Transmission Date: 20160305
  Serious: Yes (Life-Threatening, Hospitalization)
  Sender: FDA-Public Use
  Company Number: DE-OTSUKA-US-2015-10693

PATIENT
  Age: 75 Year
  Sex: Female
  Weight: 68.8 kg

DRUGS (13)
  1. DACOGEN [Suspect]
     Active Substance: DECITABINE
     Dosage: 35 MG, IN 1 DAY
     Route: 065
     Dates: start: 20150209, end: 20150213
  2. MOXONIDIN [Concomitant]
     Active Substance: MOXONIDINE
     Indication: HYPERTENSION
     Dosage: 0.2 MG, IN 1 DAY
     Route: 065
     Dates: start: 20150207
  3. MOVICOL [Concomitant]
     Active Substance: POLYETHYLENE GLYCOL 3350\POTASSIUM CHLORIDE\SODIUM BICARBONATE\SODIUM CHLORIDE
     Indication: PROPHYLAXIS
     Dosage: 13 MG, IN 1 DAY
     Route: 065
     Dates: start: 20150207
  4. PANTOZOL [Concomitant]
     Active Substance: PANTOPRAZOLE SODIUM
     Indication: PROPHYLAXIS
     Dosage: 20 MG, IN 1 DAY
     Route: 065
     Dates: start: 20150207
  5. CYKLOKAPRON [Concomitant]
     Active Substance: TRANEXAMIC ACID
     Indication: PROPHYLAXIS
     Dosage: UNK, IN 1 DAY
     Route: 065
     Dates: start: 20150206
  6. TRETINOIN. [Suspect]
     Active Substance: TRETINOIN
     Indication: ACUTE MYELOID LEUKAEMIA
     Dosage: 80 MG, IN 1 DAY
     Route: 065
     Dates: start: 20150114, end: 20150223
  7. PANTOZOL [Concomitant]
     Active Substance: PANTOPRAZOLE SODIUM
     Dosage: 40 MG, IN 1 DAY
     Route: 048
     Dates: start: 20150216
  8. DACOGEN [Suspect]
     Active Substance: DECITABINE
     Indication: ACUTE MYELOID LEUKAEMIA
     Dosage: 35 MG, IN 1 DAY
     Route: 065
     Dates: start: 20150108, end: 20150114
  9. VALPROIC ACID. [Suspect]
     Active Substance: VALPROIC ACID
     Indication: ACUTE MYELOID LEUKAEMIA
     Dosage: 1000 MG, IN 1 DAY
     Route: 065
     Dates: start: 20150108, end: 20150202
  10. MACROGOL [Concomitant]
     Active Substance: POLYETHYLENE GLYCOLS
     Indication: CONSTIPATION
     Dosage: 13.13 G, UNK
     Route: 048
     Dates: start: 20150220
  11. SIMVASTATIN. [Concomitant]
     Active Substance: SIMVASTATIN
     Indication: PROPHYLAXIS
     Dosage: 30 MG, IN 1 DAY
     Route: 048
     Dates: start: 20150106
  12. CYKLOKAPRON [Concomitant]
     Active Substance: TRANEXAMIC ACID
     Indication: HYPERFIBRINOLYSIS
     Dosage: 1000 MG, IN 1 DAY
     Route: 048
     Dates: start: 20150221
  13. VALPROIC ACID. [Suspect]
     Active Substance: VALPROIC ACID
     Dosage: 500 MG, IN 1 DAY
     Route: 065
     Dates: start: 20150209, end: 20150220

REACTIONS (4)
  - Syncope [Recovered/Resolved]
  - Syncope [Not Recovered/Not Resolved]
  - Thrombocytopenia [Recovered/Resolved with Sequelae]
  - Fatigue [Recovered/Resolved with Sequelae]

NARRATIVE: CASE EVENT DATE: 20150127
